FAERS Safety Report 5534278-8 (Version None)
Quarter: 2007Q4

REPORT INFORMATION
  Report Type: 
  Country: None (occurrence: None)
  Receive Date: 20071205
  Receipt Date: 20071128
  Transmission Date: 20080405
  Serious: Yes (Other)
  Sender: FDA-Public Use
  Company Number: US-ROCHE-511003

PATIENT
  Age: 64 Year
  Sex: Female

DRUGS (2)
  1. PEGASYS [Suspect]
     Route: 065
     Dates: start: 20070603
  2. COPEGUS [Suspect]
     Route: 065
     Dates: start: 20070603

REACTIONS (25)
  - ARTHRITIS [None]
  - ASTHENIA [None]
  - BLADDER PROLAPSE [None]
  - BLOOD CREATININE INCREASED [None]
  - BLOOD UREA INCREASED [None]
  - CHILLS [None]
  - CYSTITIS HAEMORRHAGIC [None]
  - DRY MOUTH [None]
  - DYSGEUSIA [None]
  - DYSPNOEA EXERTIONAL [None]
  - EAR PAIN [None]
  - EMOTIONAL DISORDER [None]
  - HAEMATOCRIT DECREASED [None]
  - HAEMOGLOBIN DECREASED [None]
  - HYPERHIDROSIS [None]
  - HYPERSENSITIVITY [None]
  - INSOMNIA [None]
  - NO THERAPEUTIC RESPONSE [None]
  - PHARYNGOLARYNGEAL PAIN [None]
  - PYREXIA [None]
  - RASH MACULAR [None]
  - RED BLOOD CELL COUNT DECREASED [None]
  - SINUS DISORDER [None]
  - SKIN REACTION [None]
  - WHITE BLOOD CELL COUNT DECREASED [None]
